FAERS Safety Report 18120758 (Version 1)
Quarter: 2020Q3

REPORT INFORMATION
  Report Type: Report from Study
  Country: GB (occurrence: GB)
  Receive Date: 20200806
  Receipt Date: 20200806
  Transmission Date: 20201103
  Serious: Yes (Hospitalization, Other)
  Sender: FDA-Public Use
  Company Number: NVSC2020GB130797

PATIENT
  Age: 80 Year
  Sex: Female

DRUGS (1)
  1. ERELZI [Suspect]
     Active Substance: ETANERCEPT-SZZS
     Indication: RHEUMATOID ARTHRITIS
     Dosage: 50 MG, QW
     Route: 058
     Dates: start: 20190621

REACTIONS (7)
  - Arthralgia [Recovering/Resolving]
  - Product dose omission issue [Unknown]
  - Myocardial infarction [Unknown]
  - Pain in extremity [Recovering/Resolving]
  - Drug ineffective [Unknown]
  - Carpal tunnel syndrome [Recovering/Resolving]
  - Sleep disorder [Unknown]

NARRATIVE: CASE EVENT DATE: 20200507
